FAERS Safety Report 12563741 (Version 1)
Quarter: 2016Q3

REPORT INFORMATION
  Report Type: Spontaneous
  Country: FR (occurrence: FR)
  Receive Date: 20160716
  Receipt Date: 20160716
  Transmission Date: 20161109
  Serious: Yes (Death, Life-Threatening, Hospitalization, Other)
  Sender: FDA-Public Use
  Company Number: FR-BRISTOL-MYERS SQUIBB COMPANY-BMS-2016-056347

PATIENT
  Age: 51 Year
  Sex: Female

DRUGS (3)
  1. NORVIR [Suspect]
     Active Substance: RITONAVIR
     Indication: HIV INFECTION
     Dosage: 100 MG, QD
     Route: 048
     Dates: end: 20160305
  2. REYATAZ [Suspect]
     Active Substance: ATAZANAVIR SULFATE
     Indication: HIV INFECTION
     Dosage: 300 MG, QD
     Route: 048
     Dates: end: 20160305
  3. DOCETAXEL. [Suspect]
     Active Substance: DOCETAXEL
     Indication: INVASIVE DUCTAL BREAST CARCINOMA
     Dosage: 100 MG/M2, UNK
     Route: 042
     Dates: start: 20160212

REACTIONS (7)
  - Toxic skin eruption [Fatal]
  - Packed red blood cell transfusion [Unknown]
  - Neutropenic colitis [Fatal]
  - Pancytopenia [Fatal]
  - Septic shock [Fatal]
  - Multiple organ dysfunction syndrome [Unknown]
  - Stomatitis [Fatal]

NARRATIVE: CASE EVENT DATE: 20160217
